FAERS Safety Report 5058181-5 (Version None)
Quarter: 2006Q3

REPORT INFORMATION
  Report Type: 
  Country: None (occurrence: None)
  Receive Date: 20060721
  Receipt Date: 20060711
  Transmission Date: 20061208
  Serious: Yes (Other)
  Sender: FDA-Public Use
  Company Number: PHEH2006US08862

PATIENT
  Sex: Male

DRUGS (2)
  1. ZOMETA [Suspect]
  2. FOSAMAX [Suspect]

REACTIONS (4)
  - ANXIETY [None]
  - INJURY [None]
  - OSTEONECROSIS [None]
  - PAIN [None]
